FAERS Safety Report 20795007 (Version 1)
Quarter: 2022Q2

REPORT INFORMATION
  Report Type: Spontaneous
  Country: US (occurrence: US)
  Receive Date: 20220506
  Receipt Date: 20220506
  Transmission Date: 20220721
  Serious: No
  Sender: FDA-Public Use
  Company Number: US-UCBSA-2021040031

PATIENT
  Sex: Female

DRUGS (3)
  1. CIMZIA [Interacting]
     Active Substance: CERTOLIZUMAB PEGOL
     Indication: Rheumatoid arthritis
     Dosage: UNK, MONTHLY (QM)
     Route: 058
  2. CIMZIA [Interacting]
     Active Substance: CERTOLIZUMAB PEGOL
     Indication: Spondylitis
  3. CIMZIA [Interacting]
     Active Substance: CERTOLIZUMAB PEGOL
     Indication: Connective tissue disorder

REACTIONS (5)
  - Fatigue [Not Recovered/Not Resolved]
  - Photopsia [Not Recovered/Not Resolved]
  - COVID-19 immunisation [Unknown]
  - Product use in unapproved indication [Unknown]
  - Drug interaction [Unknown]
